FAERS Safety Report 11126535 (Version 1)
Quarter: 2015Q2

REPORT INFORMATION
  Report Type: Spontaneous
  Country: US (occurrence: None)
  Receive Date: 20150508
  Receipt Date: 20150508
  Transmission Date: 20150821
  Serious: No
  Sender: FDA-Public Use
  Company Number: US-145648

PATIENT
  Age: 39 Year
  Sex: Female
  Weight: 78.88 kg

DRUGS (6)
  1. VANCOMYCIN [Concomitant]
     Active Substance: VANCOMYCIN
  2. BOTULISM ANTITOXIN [Suspect]
     Active Substance: BOTULISM ANTITOXIN
     Indication: BOTULISM
     Dosage: (INTRAVENOUS (NOT OTHERWISE SPECIFIED))
     Route: 042
     Dates: start: 20150404, end: 20150404
  3. MORPHINE [Concomitant]
     Active Substance: MORPHINE
  4. ACYCLOVIR. [Concomitant]
     Active Substance: ACYCLOVIR
  5. METRONIDAZOLE. [Concomitant]
     Active Substance: METRONIDAZOLE
  6. ROCEPHIN [Concomitant]
     Active Substance: CEFTRIAXONE SODIUM

REACTIONS (2)
  - Bradycardia [None]
  - Hypersensitivity [None]

NARRATIVE: CASE EVENT DATE: 20150405
